FAERS Safety Report 20025165 (Version 2)
Quarter: 2022Q1

REPORT INFORMATION
  Report Type: Spontaneous
  Country: None (occurrence: US)
  Receive Date: 20211102
  Receipt Date: 20220331
  Transmission Date: 20220423
  Serious: Yes (Other)
  Sender: FDA-Public Use
  Company Number: US-Imprimis NJOF-2121342

PATIENT
  Sex: Male

DRUGS (1)
  1. DEX-MOXI PF [Suspect]
     Active Substance: DEXAMETHASONE SODIUM PHOSPHATE\MOXIFLOXACIN HYDROCHLORIDE MONOHYDRATE
     Indication: Cataract

REACTIONS (1)
  - Toxic anterior segment syndrome [Recovering/Resolving]
